FAERS Safety Report 5293356-1 (Version None)
Quarter: 2007Q2

REPORT INFORMATION
  Report Type: 
  Country: None (occurrence: None)
  Receive Date: 20070411
  Receipt Date: 20070405
  Transmission Date: 20071010
  Serious: Yes (Hospitalization)
  Sender: FDA-Public Use
  Company Number: JP-MERCK-0703USA01400

PATIENT
  Age: 84 Year
  Sex: Female

DRUGS (5)
  1. TRYPTANOL [Suspect]
     Indication: HERPES VIRUS INFECTION
     Route: 048
     Dates: start: 20070228, end: 20070304
  2. VALTREX [Concomitant]
     Indication: HERPES VIRUS INFECTION
     Route: 048
     Dates: start: 20070226
  3. NU-LOTAN [Concomitant]
     Route: 048
  4. ATELEC [Concomitant]
     Route: 048
  5. BUP-4 [Concomitant]
     Route: 048

REACTIONS (1)
  - CONFUSIONAL STATE [None]
